FAERS Safety Report 16972395 (Version 1)
Quarter: 2019Q4

REPORT INFORMATION
  Report Type: Spontaneous
  Country: US (occurrence: US)
  Receive Date: 20191029
  Receipt Date: 20191029
  Transmission Date: 20200122
  Serious: No
  Sender: FDA-Public Use
  Company Number: US-PRINSTON PHARMACEUTICAL INC.-2019PRN00276

PATIENT
  Sex: Female

DRUGS (1)
  1. IRBESARTAN. [Suspect]
     Active Substance: IRBESARTAN
     Indication: HYPERTENSION
     Dosage: 300 MG, 1X/DAY
     Route: 048

REACTIONS (5)
  - Diarrhoea [Unknown]
  - Asthenia [Unknown]
  - Nausea [Unknown]
  - Fatigue [Unknown]
  - Recalled product administered [Unknown]

NARRATIVE: CASE EVENT DATE: 20190201
